FAERS Safety Report 4775011-7 (Version None)
Quarter: 2005Q3

REPORT INFORMATION
  Report Type: 
  Country: None (occurrence: None)
  Receive Date: 20050920
  Receipt Date: 20050901
  Transmission Date: 20060218
  Serious: Yes (Death)
  Sender: FDA-Public Use
  Company Number: RENA-11509

PATIENT
  Age: 62 Year
  Sex: Male

DRUGS (1)
  1. PHOSBLOCK [Suspect]

REACTIONS (1)
  - SUDDEN DEATH [None]
